FAERS Safety Report 9808859 (Version 2)
Quarter: 2014Q1

REPORT INFORMATION
  Report Type: Spontaneous
  Country: US (occurrence: US)
  Receive Date: 20140110
  Receipt Date: 20140110
  Transmission Date: 20141002
  Serious: Yes (Other)
  Sender: FDA-Public Use
  Company Number: US-CELGENEUS-163-20785-13112058

PATIENT
  Sex: Female

DRUGS (3)
  1. THALOMID [Suspect]
     Indication: PLASMA CELL MYELOMA
     Dosage: 50 MILLIGRAM
     Route: 048
     Dates: start: 200811, end: 2009
  2. THALOMID [Suspect]
     Route: 048
     Dates: start: 20110917, end: 2013
  3. THALOMID [Suspect]
     Route: 048
     Dates: start: 20130628

REACTIONS (5)
  - Palmar-plantar erythrodysaesthesia syndrome [Unknown]
  - Hypoaesthesia [Unknown]
  - Rash [Unknown]
  - Sinusitis [Unknown]
  - Pneumonia [Unknown]
